FAERS Safety Report 8288406-4 (Version None)
Quarter: 2012Q2

REPORT INFORMATION
  Report Type: 
  Country: None (occurrence: None)
  Receive Date: 20120416
  Receipt Date: 20120405
  Transmission Date: 20120825
  Serious: Yes (Hospitalization, Other)
  Sender: FDA-Public Use
  Company Number: DE-BAXTER-2011BH039102

PATIENT
  Sex: Female
  Weight: 73 kg

DRUGS (1)
  1. ARTISS [Suspect]
     Indication: ABDOMINOPLASTY
     Route: 065
     Dates: start: 20111129

REACTIONS (4)
  - INFLAMMATION [None]
  - WOUND DEHISCENCE [None]
  - FAT NECROSIS [None]
  - POSTOPERATIVE WOUND INFECTION [None]
